FAERS Safety Report 21969870 (Version 3)
Quarter: 2023Q2

REPORT INFORMATION
  Report Type: Spontaneous
  Country: US (occurrence: US)
  Receive Date: 20230208
  Receipt Date: 20230404
  Transmission Date: 20230722
  Serious: Yes (Other)
  Sender: FDA-Public Use
  Company Number: US-BIOGEN-2022BI01094321

PATIENT
  Age: 52 Year
  Sex: Male

DRUGS (5)
  1. TYSABRI [Suspect]
     Active Substance: NATALIZUMAB
     Indication: Multiple sclerosis
     Route: 050
     Dates: start: 20210611
  2. TYSABRI [Suspect]
     Active Substance: NATALIZUMAB
     Dosage: INFUSED OVER 1 HOUR
     Route: 050
  3. TYSABRI [Suspect]
     Active Substance: NATALIZUMAB
     Route: 050
     Dates: start: 20210611
  4. TYSABRI [Suspect]
     Active Substance: NATALIZUMAB
     Route: 050
  5. COVID-19 VACCINE NOS [Suspect]
     Active Substance: COVID-19 VACCINE NOS
     Indication: Immunisation
     Route: 050

REACTIONS (21)
  - Latent tuberculosis [Unknown]
  - Spinal fracture [Unknown]
  - Cognitive disorder [Not Recovered/Not Resolved]
  - Insomnia [Unknown]
  - Mobility decreased [Unknown]
  - Multiple sclerosis relapse [Not Recovered/Not Resolved]
  - Intervertebral disc protrusion [Not Recovered/Not Resolved]
  - Procedural complication [Not Recovered/Not Resolved]
  - Trigeminal nerve disorder [Unknown]
  - Ear pain [Unknown]
  - Immunisation reaction [Recovered/Resolved]
  - Product dose omission issue [Unknown]
  - Head discomfort [Unknown]
  - Sleep terror [Unknown]
  - Limb discomfort [Unknown]
  - Prescribed underdose [Unknown]
  - Lower limb fracture [Unknown]
  - Fatigue [Not Recovered/Not Resolved]
  - Muscle spasms [Unknown]
  - Headache [Unknown]
  - Depression [Unknown]

NARRATIVE: CASE EVENT DATE: 20210901
